FAERS Safety Report 19452508 (Version 1)
Quarter: 2021Q2

REPORT INFORMATION
  Report Type: Spontaneous
  Country: US (occurrence: US)
  Receive Date: 20210623
  Receipt Date: 20210623
  Transmission Date: 20210717
  Serious: No
  Sender: FDA-Public Use
  Company Number: US-JNJFOC-20210644213

PATIENT
  Age: 63 Year
  Sex: Female
  Weight: 93.9 kg

DRUGS (8)
  1. TREPROSTINIL. [Concomitant]
     Active Substance: TREPROSTINIL
     Indication: PULMONARY ARTERIAL HYPERTENSION
     Dosage: 1 MG, 0.25 MG AND 0.125 MG AND THE CURRENT DOSE WAS REPORTED AS 1.625 MG, ORAL (PO), EVERY 12 HOURS
     Route: 048
     Dates: start: 20210608
  2. TREPROSTINIL. [Concomitant]
     Active Substance: TREPROSTINIL
     Route: 048
  3. COVID?19 VACCINE [Concomitant]
     Indication: COVID-19
     Dosage: THERAPY DATES  06/??/2021
     Route: 065
  4. TREPROSTINIL. [Concomitant]
     Active Substance: TREPROSTINIL
     Route: 048
  5. WARFARIN SODIUM. [Concomitant]
     Active Substance: WARFARIN SODIUM
     Indication: PRODUCT USED FOR UNKNOWN INDICATION
     Route: 065
  6. IMODIUM [Suspect]
     Active Substance: LOPERAMIDE HYDROCHLORIDE
     Indication: DIARRHOEA
     Route: 048
  7. TREPROSTINIL. [Concomitant]
     Active Substance: TREPROSTINIL
     Route: 048
  8. ADEMPAS [Concomitant]
     Active Substance: RIOCIGUAT
     Indication: PRODUCT USED FOR UNKNOWN INDICATION
     Route: 065

REACTIONS (1)
  - Drug ineffective [Unknown]
